FAERS Safety Report 23538116 (Version 3)
Quarter: 2024Q2

REPORT INFORMATION
  Report Type: Spontaneous
  Country: US (occurrence: US)
  Receive Date: 20240219
  Receipt Date: 20240506
  Transmission Date: 20240716
  Serious: Yes (Other)
  Sender: FDA-Public Use
  Company Number: None

PATIENT

DRUGS (15)
  1. LEVOTHYROXINE [Suspect]
     Active Substance: LEVOTHYROXINE\LEVOTHYROXINE SODIUM
     Indication: Huerthle cell carcinoma
     Dosage: 200 MICROGRAM, QD
     Route: 065
  2. LEVOTHYROXINE [Suspect]
     Active Substance: LEVOTHYROXINE\LEVOTHYROXINE SODIUM
     Dosage: 137 MICROGRAM, QD
     Route: 065
     Dates: start: 20230424
  3. LEVOTHYROXINE [Suspect]
     Active Substance: LEVOTHYROXINE\LEVOTHYROXINE SODIUM
     Dosage: 125 MICROGRAM, QD
     Route: 065
     Dates: start: 20230414
  4. LEVOTHYROXINE [Suspect]
     Active Substance: LEVOTHYROXINE\LEVOTHYROXINE SODIUM
     Route: 065
     Dates: start: 20200903
  5. LEVOTHYROXINE [Suspect]
     Active Substance: LEVOTHYROXINE\LEVOTHYROXINE SODIUM
     Route: 065
     Dates: start: 20211230
  6. LEVOTHYROXINE [Suspect]
     Active Substance: LEVOTHYROXINE\LEVOTHYROXINE SODIUM
     Route: 065
     Dates: start: 20200504
  7. LEVOTHYROXINE [Suspect]
     Active Substance: LEVOTHYROXINE\LEVOTHYROXINE SODIUM
     Route: 065
     Dates: start: 20191104
  8. LEVOTHYROXINE [Suspect]
     Active Substance: LEVOTHYROXINE\LEVOTHYROXINE SODIUM
     Dosage: 137 MICROGRAM, QD
     Route: 065
     Dates: start: 20220714
  9. LEVOTHYROXINE [Suspect]
     Active Substance: LEVOTHYROXINE\LEVOTHYROXINE SODIUM
     Dosage: 137 MICROGRAM,
     Route: 065
     Dates: start: 20220517
  10. 1,25-dihydroxyvitamin D [Concomitant]
     Indication: Product used for unknown indication
     Dosage: UNK
     Route: 065
  11. LENVATINIB [Concomitant]
     Active Substance: LENVATINIB
     Indication: Huerthle cell carcinoma
     Dosage: 24 MILLIGRAM, QD
     Route: 065
  12. CABOZANTINIB [Concomitant]
     Active Substance: CABOZANTINIB
     Indication: Huerthle cell carcinoma
     Dosage: UNK
     Route: 065
  13. PAZOPANIB [Concomitant]
     Active Substance: PAZOPANIB
     Indication: Huerthle cell carcinoma
     Dosage: 600 MILLIGRAM, QD
     Route: 065
  14. IODINE [Concomitant]
     Active Substance: IODINE
     Indication: Huerthle cell carcinoma
     Dosage: UNK (141 MCI OF RADIOACTIVE IODINE (131I) )
     Route: 065
  15. ZOLEDRONIC ACID [Concomitant]
     Active Substance: ZOLEDRONIC ACID
     Indication: Hypercalcaemia
     Dosage: UNK
     Route: 065

REACTIONS (1)
  - Hyperthyroidism [Recovered/Resolved]

NARRATIVE: CASE EVENT DATE: 20200903
